FAERS Safety Report 7691319-X (Version None)
Quarter: 2011Q3

REPORT INFORMATION
  Report Type: 
  Country: None (occurrence: None)
  Receive Date: 20110818
  Receipt Date: 20110809
  Transmission Date: 20111222
  Serious: Yes (Other)
  Sender: FDA-Public Use
  Company Number: US-JNJFOC-20110800558

PATIENT
  Sex: Female
  Weight: 53.52 kg

DRUGS (3)
  1. CELEBREX [Concomitant]
     Route: 048
  2. REMICADE [Suspect]
     Indication: RHEUMATOID ARTHRITIS
     Route: 042
     Dates: start: 20060101
  3. PREDNISONE [Concomitant]
     Route: 048

REACTIONS (1)
  - BUNION [None]
